FAERS Safety Report 7646579-8 (Version None)
Quarter: 2011Q3

REPORT INFORMATION
  Report Type: 
  Country: None (occurrence: None)
  Receive Date: 20110725
  Receipt Date: 20110711
  Transmission Date: 20111222
  Serious: Yes (Other)
  Sender: FDA-Public Use
  Company Number: TCI2011A03770

PATIENT
  Age: 74 Year
  Sex: Male

DRUGS (10)
  1. ALLOPURINOL [Concomitant]
  2. ACTOS [Suspect]
     Indication: DIABETES MELLITUS
     Dosage: 15 MG (15 MG, 1 IN 1 D), PER ORAL, 30 MG (30 MG, 1 IN 1 D), PER ORAL
     Route: 048
     Dates: start: 20050815
  3. ACTOS [Suspect]
     Indication: DIABETES MELLITUS
     Dosage: 15 MG (15 MG, 1 IN 1 D), PER ORAL, 30 MG (30 MG, 1 IN 1 D), PER ORAL
     Route: 048
     Dates: start: 20050719, end: 20050814
  4. NORVASC [Concomitant]
  5. PIROLACTON (SPIRONOLACTONE) [Concomitant]
  6. ASPIRIN [Concomitant]
  7. DIOVAN [Concomitant]
  8. LIPITOR [Concomitant]
  9. AMARYL [Concomitant]
  10. BENZMARONE (BENZBROMARONE) [Concomitant]

REACTIONS (1)
  - BLADDER CANCER [None]
